FAERS Safety Report 11686942 (Version 1)
Quarter: 2015Q4

REPORT INFORMATION
  Report Type: Spontaneous
  Country: FR (occurrence: FR)
  Receive Date: 20151030
  Receipt Date: 20151030
  Transmission Date: 20160304
  Serious: Yes (Life-Threatening, Hospitalization, Other)
  Sender: FDA-Public Use
  Company Number: FR-WATSON-2015-23352

PATIENT
  Age: 83 Year
  Sex: Male

DRUGS (2)
  1. CELECOXIB (UNKNOWN) [Suspect]
     Active Substance: CELECOXIB
     Indication: PRODUCT USED FOR UNKNOWN INDICATION
     Dosage: UNK
     Route: 065
  2. ACETYLSALICYLIC ACID [Suspect]
     Active Substance: ASPIRIN
     Indication: PRODUCT USED FOR UNKNOWN INDICATION
     Dosage: UNK
     Route: 065

REACTIONS (4)
  - Blood urea increased [Unknown]
  - Shock haemorrhagic [Unknown]
  - Duodenal ulcer perforation [Unknown]
  - Colitis ischaemic [Unknown]
